FAERS Safety Report 13553743 (Version 1)
Quarter: 2017Q2

REPORT INFORMATION
  Report Type: Spontaneous
  Country: CN (occurrence: CN)
  Receive Date: 20170517
  Receipt Date: 20170517
  Transmission Date: 20170830
  Serious: Yes (Hospitalization, Disabling)
  Sender: FDA-Public Use
  Company Number: CN-JNJFOC-20170503299

PATIENT
  Age: 5 Day
  Sex: Female
  Weight: 1.56 kg

DRUGS (2)
  1. MOTRIN [Suspect]
     Active Substance: IBUPROFEN
     Indication: PATENT DUCTUS ARTERIOSUS
     Route: 045
     Dates: start: 20170225, end: 20170301
  2. MOTRIN [Suspect]
     Active Substance: IBUPROFEN
     Indication: PREOPERATIVE CARE
     Route: 045
     Dates: start: 20170225, end: 20170301

REACTIONS (4)
  - Incorrect route of drug administration [Recovering/Resolving]
  - Off label use [Recovering/Resolving]
  - Product use in unapproved indication [Recovering/Resolving]
  - Gastric haemorrhage [Recovering/Resolving]

NARRATIVE: CASE EVENT DATE: 20170225
